FAERS Safety Report 4488267-5 (Version None)
Quarter: 2004Q4

REPORT INFORMATION
  Report Type: 
  Country: None (occurrence: None)
  Receive Date: 20041026
  Receipt Date: 20041021
  Transmission Date: 20050328
  Serious: Yes (Hospitalization, Other)
  Sender: FDA-Public Use
  Company Number: S04-USA-03515-01

PATIENT
  Age: 30 Year
  Sex: Female
  Weight: 52.1637 kg

DRUGS (6)
  1. LEXAPRO [Suspect]
     Indication: DEPRESSION
     Dosage: 10 MG QD PO
     Route: 048
     Dates: start: 20030101
  2. LEXAPRO [Suspect]
     Indication: DEPRESSION
     Dosage: 15 MG QD PO
     Route: 048
  3. PRENATAL VITAMINS [Concomitant]
  4. STOOL SOFTENERS [Concomitant]
  5. CALCIUM [Concomitant]
  6. VITAMIN D [Concomitant]

REACTIONS (16)
  - BACK PAIN [None]
  - DRUG EXPOSURE DURING PREGNANCY [None]
  - DRUG INEFFECTIVE [None]
  - DRY SKIN [None]
  - DYSPEPSIA [None]
  - FUNGAL INFECTION [None]
  - NASOPHARYNGITIS [None]
  - NAUSEA [None]
  - PREMATURE SEPARATION OF PLACENTA [None]
  - RASH [None]
  - URETHRAL DISORDER [None]
  - URINARY TRACT INFECTION [None]
  - UTERINE PROLAPSE [None]
  - VAGINAL PROLAPSE [None]
  - VOMITING [None]
  - WEIGHT DECREASED [None]
